FAERS Safety Report 13365598 (Version 1)
Quarter: 2017Q1

REPORT INFORMATION
  Report Type: Spontaneous
  Country: US (occurrence: US)
  Receive Date: 20170323
  Receipt Date: 20170323
  Transmission Date: 20170429
  Serious: Yes (Other)
  Sender: FDA-Public Use
  Company Number: US-WARNER CHILCOTT-2016-001072

PATIENT
  Sex: Female

DRUGS (3)
  1. CARVEDILOL. [Concomitant]
     Active Substance: CARVEDILOL
     Indication: HYPERTENSION
  2. ESTRACE [Suspect]
     Active Substance: ESTRADIOL
     Indication: BLADDER OPERATION
     Dosage: UNKNOWN
     Route: 067
     Dates: start: 20160513, end: 20160514
  3. BENAZEPRIL [Concomitant]
     Active Substance: BENAZEPRIL HYDROCHLORIDE
     Indication: HYPERTENSION

REACTIONS (4)
  - Dizziness [Unknown]
  - Product use issue [Unknown]
  - Blood pressure increased [Unknown]
  - Epistaxis [Unknown]

NARRATIVE: CASE EVENT DATE: 201605
